FAERS Safety Report 5908852-0 (Version None)
Quarter: 2008Q4

REPORT INFORMATION
  Report Type: 
  Country: None (occurrence: None)
  Receive Date: 20081006
  Receipt Date: 20080929
  Transmission Date: 20090506
  Serious: Yes (Other)
  Sender: FDA-Public Use
  Company Number: US-NOVOPROD-277175

PATIENT
  Age: 75 Year
  Sex: Female

DRUGS (3)
  1. LEVEMIR [Suspect]
     Indication: INSULIN-REQUIRING TYPE 2 DIABETES MELLITUS
     Dosage: 40 IU, QD
     Route: 058
     Dates: end: 20080705
  2. LASIX [Concomitant]
     Indication: SWELLING
     Dosage: UNKNOWN
     Route: 048
  3. SPIRONOLACTONE [Concomitant]
     Indication: SWELLING
     Dosage: UNKNOWN
     Route: 048

REACTIONS (3)
  - BLOOD GLUCOSE INCREASED [None]
  - DRUG INEFFECTIVE [None]
  - LOSS OF CONSCIOUSNESS [None]
